FAERS Safety Report 25466507 (Version 2)
Quarter: 2025Q3

REPORT INFORMATION
  Report Type: Spontaneous
  Country: US (occurrence: US)
  Receive Date: 20250623
  Receipt Date: 20250812
  Transmission Date: 20251021
  Serious: Yes (Other)
  Sender: COOPERSURGICAL
  Company Number: US-COOPERSURGICAL, INC.-2025CPS004983

PATIENT
  Sex: Female
  Weight: 102.04 kg

DRUGS (4)
  1. PARAGARD T 380A [Suspect]
     Active Substance: COPPER
     Indication: Contraception
     Route: 015
     Dates: start: 20170812
  2. METFORMIN [Concomitant]
     Active Substance: METFORMIN HYDROCHLORIDE
     Dates: start: 202308
  3. SPIRONOLACTONE [Concomitant]
     Active Substance: SPIRONOLACTONE
     Dates: start: 202308
  4. HYDROXYZINE [Concomitant]
     Active Substance: HYDROXYZINE HYDROCHLORIDE
     Dates: start: 202210, end: 202311

REACTIONS (19)
  - Pelvic inflammatory disease [Recovered/Resolved]
  - Device breakage [Recovered/Resolved]
  - Foreign body in reproductive tract [Recovered/Resolved]
  - Complication of device removal [Recovered/Resolved]
  - Procedural pain [Recovered/Resolved]
  - Inflammation [Recovered/Resolved]
  - Anxiety [Unknown]
  - Panic attack [Unknown]
  - Haematuria [Unknown]
  - Diarrhoea [Recovered/Resolved]
  - Abdominal pain [Recovered/Resolved]
  - Nausea [Recovered/Resolved]
  - Device dislocation [Recovered/Resolved]
  - Abdominal pain lower [Recovered/Resolved]
  - Dizziness [Recovered/Resolved]
  - Abnormal uterine bleeding [Recovered/Resolved]
  - Menstruation irregular [Not Recovered/Not Resolved]
  - Heavy menstrual bleeding [Unknown]
  - Device expulsion [Recovered/Resolved]

NARRATIVE: CASE EVENT DATE: 20230101
